FAERS Safety Report 5760583-6 (Version None)
Quarter: 2008Q2

REPORT INFORMATION
  Report Type: 
  Country: None (occurrence: None)
  Receive Date: 20080602
  Receipt Date: 20080522
  Transmission Date: 20081010
  Serious: Yes (Other)
  Sender: FDA-Public Use
  Company Number: GXBR2008US01196

PATIENT
  Age: 29 Year
  Sex: Female

DRUGS (1)
  1. AMPICILLIN [Suspect]
     Indication: PROPHYLAXIS
     Dosage: 2G, ONCE/SINGLE, INTRAVENOUS
     Route: 042
     Dates: start: 20080521, end: 20080521

REACTIONS (4)
  - ANAPHYLACTIC SHOCK [None]
  - CAESAREAN SECTION [None]
  - DRUG EXPOSURE DURING PREGNANCY [None]
  - HYPERKALAEMIA [None]
